FAERS Safety Report 23581629 (Version 1)
Quarter: 2024Q1

REPORT INFORMATION
  Report Type: Spontaneous
  Country: US (occurrence: US)
  Receive Date: 20240229
  Receipt Date: 20240229
  Transmission Date: 20240410
  Serious: No
  Sender: FDA-Public Use
  Company Number: US-PFIZER INC-202400052965

PATIENT
  Age: 75 Year
  Sex: Female

DRUGS (1)
  1. VELSIPITY [Suspect]
     Active Substance: ETRASIMOD ARGININE
     Indication: Colitis ulcerative
     Dosage: 2 MG, 2X/DAY
     Dates: start: 20240227

REACTIONS (2)
  - Rectal discharge [Unknown]
  - Dizziness [Unknown]

NARRATIVE: CASE EVENT DATE: 20240227
